FAERS Safety Report 15799689 (Version 4)
Quarter: 2023Q2

REPORT INFORMATION
  Report Type: Spontaneous
  Country: FI (occurrence: FI)
  Receive Date: 20190108
  Receipt Date: 20230411
  Transmission Date: 20230722
  Serious: Yes (Other)
  Sender: FDA-Public Use
  Company Number: FI-UCBSA-2018028558

PATIENT
  Age: 40 Year
  Sex: Female

DRUGS (31)
  1. MAGNESIUM HYDROXIDE [Suspect]
     Active Substance: MAGNESIUM HYDROXIDE
     Indication: Product used for unknown indication
     Dosage: IF NEEDED 125 MG, MAX 250 MG/DAY
     Route: 048
  2. MAGNESIUM HYDROXIDE [Suspect]
     Active Substance: MAGNESIUM HYDROXIDE
     Dosage: IF NEEDED 125 MG, MAX 250 MG/DAY
     Route: 048
  3. MAGNESIUM HYDROXIDE [Suspect]
     Active Substance: MAGNESIUM HYDROXIDE
     Dosage: IF NEEDED 125 MG, MAX 250 MG/DAY
     Route: 048
  4. OXAZEPAM [Suspect]
     Active Substance: OXAZEPAM
     Indication: Product used for unknown indication
     Dosage: IF NEEDED, MAX 30 MG/DAY.
     Route: 048
  5. OXAZEPAM [Suspect]
     Active Substance: OXAZEPAM
     Dosage: 15-30 MG AS NEEDED, MAX 30MG/DAY
     Route: 048
  6. OXAZEPAM [Suspect]
     Active Substance: OXAZEPAM
     Dosage: 15 MG, AS NEEDED (PRN)UNK
     Route: 048
  7. OXAZEPAM [Suspect]
     Active Substance: OXAZEPAM
     Dosage: IF NEEDED, MAX 30 MG/DAY
     Route: 065
  8. SEROQUEL [Suspect]
     Active Substance: QUETIAPINE FUMARATE
     Indication: Product used for unknown indication
     Dosage: 300 MG, 3X/DAY (TID)
     Route: 048
  9. SEROQUEL [Suspect]
     Active Substance: QUETIAPINE FUMARATE
     Dosage: 400 MG, ONCE DAILY (QD)
     Route: 048
  10. SEROQUEL [Suspect]
     Active Substance: QUETIAPINE FUMARATE
     Dosage: 500 MG ONCE DAILY, ADDITIONALLY, AS NECESSARYUNK
     Route: 048
  11. SEROQUEL [Suspect]
     Active Substance: QUETIAPINE FUMARATE
     Dosage: 500 MG ONCE A DAY, ADDITIONALLY IF NEEDED
     Route: 048
  12. SEROQUEL [Suspect]
     Active Substance: QUETIAPINE FUMARATE
     Dosage: 1 DOSAGE FORM, QD
     Route: 048
     Dates: start: 20170922
  13. FERROUS GLYCINE SULFATE [Suspect]
     Active Substance: FERROUS GLYCINE SULFATE
     Indication: Product used for unknown indication
     Dosage: 100MG TABL. 1 CAPSULE/DAY
     Route: 048
     Dates: start: 20171020
  14. LORAZEPAM [Suspect]
     Active Substance: LORAZEPAM
     Indication: Product used for unknown indication
     Dosage: 2 MG/ML INJECTION, PRN, 4 MG (MAX 8 MG/DAY).
     Route: 065
  15. LORAZEPAM [Suspect]
     Active Substance: LORAZEPAM
     Dosage: 4 MG (MAX 8 MG/DAY)
     Route: 065
  16. QUETIAPINE FUMARATE [Suspect]
     Active Substance: QUETIAPINE FUMARATE
     Indication: Product used for unknown indication
     Dosage: (PRN) UP TO 600 MG DAILY
     Route: 048
  17. QUETIAPINE FUMARATE [Suspect]
     Active Substance: QUETIAPINE FUMARATE
     Dosage: 100 MG 1 - 2 TAB DAILYUNK
     Route: 048
  18. QUETIAPINE FUMARATE [Suspect]
     Active Substance: QUETIAPINE FUMARATE
     Dosage: 100 MG TABLET PRN, IF NEEDED, MAX 300 MG/DAY.
     Route: 048
  19. QUETIAPINE FUMARATE [Suspect]
     Active Substance: QUETIAPINE FUMARATE
     Dosage: 100MG +100MG +200 MG EV DAYUNK
     Route: 048
  20. QUETIAPINE FUMARATE [Suspect]
     Active Substance: QUETIAPINE FUMARATE
     Dosage: 100 MG+100 MG+200 MG EVERY DAY, MAX. 400 MG/DAY.
     Route: 048
     Dates: start: 20170922
  21. QUETIAPINE FUMARATE [Suspect]
     Active Substance: QUETIAPINE FUMARATE
     Dosage: 100 MILLIGRAM, PRN
     Route: 048
  22. QUETIAPINE FUMARATE [Suspect]
     Active Substance: QUETIAPINE FUMARATE
     Dosage: 200 MG, ONCE DAILY (QD)
     Route: 048
  23. QUETIAPINE FUMARATE [Suspect]
     Active Substance: QUETIAPINE FUMARATE
     Dosage: 2 TABLETS ONCE A DAY, IF NEEDED, MAX 300 MG/DAY.
     Route: 048
     Dates: start: 20170824
  24. QUETIAPINE FUMARATE [Suspect]
     Active Substance: QUETIAPINE FUMARATE
     Dosage: 1-2 TABLET A DAY.IF NEEDED MAX 600 MG/DAY
     Route: 048
     Dates: start: 20170505
  25. QUETIAPINE FUMARATE [Suspect]
     Active Substance: QUETIAPINE FUMARATE
     Dosage: 50MG+50MG+200MG EVERY DAY.1 TABLET IF NEEDED,
     Route: 048
  26. TEMAZEPAM [Suspect]
     Active Substance: TEMAZEPAM
     Indication: Product used for unknown indication
     Dosage: 10 MG, AS NEEDED (PRN);1 TAB IN THE EVENING
     Route: 048
  27. TEMAZEPAM [Suspect]
     Active Substance: TEMAZEPAM
     Dosage: AS NECESSARY, UP TO MAX 20 MG/DAYUNK
     Route: 048
  28. TEMAZEPAM [Suspect]
     Active Substance: TEMAZEPAM
     Dosage: 1 TABLET IN EVENING, MAX 20 MG/DAY
     Route: 048
  29. OXAZEPAM [Suspect]
     Active Substance: OXAZEPAM
     Indication: Product used for unknown indication
     Dosage: IF NEEDED, MAX 45 MG/DAY
     Route: 048
  30. ACETAMINOPHEN [Suspect]
     Active Substance: ACETAMINOPHEN
     Indication: Product used for unknown indication
     Dosage: 1 G, AS NEEDED (PRN); MAX 3 G PER DAY
     Route: 048
  31. ACETAMINOPHEN [Suspect]
     Active Substance: ACETAMINOPHEN
     Indication: Product used for unknown indication
     Dosage: UNK, PRN, IF NEEDED, MAX 3 G/DAY
     Route: 048

REACTIONS (6)
  - Caesarean section [Unknown]
  - Premature delivery [Unknown]
  - Malnutrition [Unknown]
  - Anaemia [Unknown]
  - Live birth [Unknown]
  - Maternal exposure during pregnancy [Unknown]

NARRATIVE: CASE EVENT DATE: 20171106
